FAERS Safety Report 13558017 (Version 1)
Quarter: 2017Q2

REPORT INFORMATION
  Report Type: Spontaneous
  Country: US (occurrence: US)
  Receive Date: 20170518
  Receipt Date: 20170518
  Transmission Date: 20170830
  Serious: No
  Sender: FDA-Public Use
  Company Number: US-GLAXOSMITHKLINE-US2017069700

PATIENT
  Sex: Female

DRUGS (1)
  1. FLONASE SENSIMIST ALLERGY RELIEF [Suspect]
     Active Substance: FLUTICASONE FUROATE
     Indication: HYPERSENSITIVITY
     Dosage: UNK
     Dates: start: 201704

REACTIONS (9)
  - Erythema of eyelid [Unknown]
  - Paranasal sinus discomfort [Unknown]
  - Head discomfort [Unknown]
  - Ocular hyperaemia [Unknown]
  - Headache [Unknown]
  - Eye pruritus [Unknown]
  - Sinus pain [Unknown]
  - Dizziness [Unknown]
  - Eye swelling [Unknown]
